FAERS Safety Report 15003649 (Version 5)
Quarter: 2018Q3

REPORT INFORMATION
  Report Type: Spontaneous
  Country: JP (occurrence: JP)
  Receive Date: 20180613
  Receipt Date: 20180810
  Transmission Date: 20181010
  Serious: Yes (Hospitalization, Other)
  Sender: FDA-Public Use
  Company Number: JP-ASTRAZENECA-2018SE75823

PATIENT
  Age: 25100 Day
  Sex: Female
  Weight: 59 kg

DRUGS (5)
  1. IBRANCE [Suspect]
     Active Substance: PALBOCICLIB
     Indication: BREAST CANCER FEMALE
     Dosage: DOSE UNKNOWN
     Route: 048
     Dates: start: 20180306, end: 2018
  2. LASIX [Concomitant]
     Active Substance: FUROSEMIDE
     Dosage: 10.0MG UNKNOWN
     Route: 065
  3. IBRANCE [Suspect]
     Active Substance: PALBOCICLIB
     Indication: BREAST CANCER FEMALE
     Route: 048
     Dates: start: 20180417, end: 20180522
  4. MEDICON [Suspect]
     Active Substance: DEXTROMETHORPHAN HYDROBROMIDE
     Route: 048
     Dates: start: 20180516, end: 20180522
  5. FASLODEX [Suspect]
     Active Substance: FULVESTRANT
     Indication: BREAST CANCER FEMALE
     Dosage: 500.0MG UNKNOWN
     Route: 030
     Dates: start: 20171114, end: 20180529

REACTIONS (23)
  - Pleural effusion [Unknown]
  - Thoracic haemorrhage [Unknown]
  - Bronchitis [Recovered/Resolved]
  - Infectious pleural effusion [Unknown]
  - Oropharyngeal pain [Recovering/Resolving]
  - Neutropenia [Unknown]
  - Headache [Recovered/Resolved]
  - Tumour marker increased [Recovered/Resolved]
  - Meningitis [Unknown]
  - Malignant neoplasm progression [Unknown]
  - Fall [Recovered/Resolved]
  - Pneumonia [Unknown]
  - Tremor [Unknown]
  - Metastases to pleura [Unknown]
  - Muscular weakness [Unknown]
  - Gait disturbance [Unknown]
  - Interstitial lung disease [Recovered/Resolved]
  - Ascites [Unknown]
  - Lymphangiosis carcinomatosa [Unknown]
  - Metastases to bone [Unknown]
  - Cough [Recovering/Resolving]
  - Lymphadenopathy [Unknown]
  - Pyrexia [Unknown]

NARRATIVE: CASE EVENT DATE: 20180109
